FAERS Safety Report 17236758 (Version 1)
Quarter: 2020Q1

REPORT INFORMATION
  Report Type: Spontaneous
  Country: MT (occurrence: MT)
  Receive Date: 20200106
  Receipt Date: 20200106
  Transmission Date: 20200409
  Serious: Yes (Hospitalization)
  Sender: FDA-Public Use
  Company Number: MT-EPIC PHARMA LLC-2019EPC00369

PATIENT
  Age: 44 Year
  Sex: Male

DRUGS (7)
  1. BROMAZEPAM [Concomitant]
     Active Substance: BROMAZEPAM
     Dosage: 3 MG, 3X/DAY
     Route: 065
  2. PHENYTOIN. [Suspect]
     Active Substance: PHENYTOIN
     Dosage: 100 MG, 3X/DAY (100-100-100 MG); GRADUALLY TAILED DOWN BY 50 MG EVERY 2 WEEKS UNTIL IT WAS STOPPED
     Route: 065
     Dates: start: 201002
  3. AMITRIPTYLINE [Concomitant]
     Active Substance: AMITRIPTYLINE
     Dosage: 10 MG, 3X/DAY
     Route: 065
  4. PHENYTOIN. [Suspect]
     Active Substance: PHENYTOIN
     Indication: EPILEPSY
     Dosage: 100 MG, 3X/DAY (100-100-100 MG)
     Route: 065
     Dates: end: 201002
  5. CARBAMAZEPINE. [Suspect]
     Active Substance: CARBAMAZEPINE
     Indication: EPILEPSY
     Dosage: 200 MG, 3X/DAY
     Route: 065
  6. PHENOBARBITAL. [Suspect]
     Active Substance: PHENOBARBITAL
     Indication: EPILEPSY
     Dosage: 30 MG, 3X/DAY
     Route: 065
  7. PHENYTOIN. [Suspect]
     Active Substance: PHENYTOIN
     Dosage: (100-100-150 MG)
     Route: 065
     Dates: start: 201002, end: 201002

REACTIONS (3)
  - Hypocalcaemia [Recovered/Resolved]
  - Epilepsy [Recovered/Resolved]
  - Vitamin D deficiency [Recovered/Resolved]
